FAERS Safety Report 11774544 (Version 1)
Quarter: 2015Q4

REPORT INFORMATION
  Report Type: Spontaneous
  Country: DE (occurrence: DE)
  Receive Date: 20151124
  Receipt Date: 20151124
  Transmission Date: 20160304
  Serious: Yes (Congenital Anomaly)
  Sender: FDA-Public Use
  Company Number: DE-TEVA-611856GER

PATIENT
  Age: 1 Day
  Sex: Male
  Weight: 3.98 kg

DRUGS (3)
  1. LEVETIRACETAM. [Suspect]
     Active Substance: LEVETIRACETAM
     Indication: EPILEPSY
     Dosage: 1000 MILLIGRAM DAILY;
     Route: 064
     Dates: start: 20140927, end: 20150717
  2. NOVOPULMON 200 NOVOLIZER [Suspect]
     Active Substance: BUDESONIDE
     Indication: ASTHMA
     Dosage: .8 MILLIGRAM DAILY;
     Route: 064
     Dates: start: 20140927, end: 20150717
  3. BERODUAL N DOSIERAEROSOL [Concomitant]
     Indication: ASTHMA
     Dosage: 0.1 (MG/D) / 0.04 (MG/D )/ ON DEMAND; BERODUAL CONTAINS IPRATROPIUM BROMIDE AND FENOTEROL
     Route: 064
     Dates: start: 20140927, end: 20150717

REACTIONS (3)
  - Pancreatic cyst [Not Recovered/Not Resolved]
  - Congenital hydronephrosis [Not Recovered/Not Resolved]
  - Foetal exposure during pregnancy [Unknown]

NARRATIVE: CASE EVENT DATE: 20150717
